FAERS Safety Report 9743202 (Version 1)
Quarter: 2013Q4

REPORT INFORMATION
  Report Type: Spontaneous
  Country: US (occurrence: US)
  Receive Date: 20131210
  Receipt Date: 20131210
  Transmission Date: 20140711
  Serious: Yes (Hospitalization)
  Sender: FDA-Public Use
  Company Number: US-GILEAD-2009-0025012

PATIENT
  Sex: Female
  Weight: 42.64 kg

DRUGS (11)
  1. LETAIRIS [Suspect]
     Indication: PULMONARY ARTERIAL HYPERTENSION
     Route: 048
     Dates: start: 20080409
  2. OXYGEN [Concomitant]
  3. PROCARDIA XL [Concomitant]
  4. PREDNISONE [Concomitant]
  5. TRAZODONE [Concomitant]
  6. PROTONIX [Concomitant]
  7. CITALOPRAM HBR [Concomitant]
  8. COLCHICINE [Concomitant]
  9. FLUOXETINE [Concomitant]
  10. LORATADINE [Concomitant]
  11. COLACE [Concomitant]

REACTIONS (2)
  - Dyspnoea [Unknown]
  - Fluid retention [Unknown]
